FAERS Safety Report 5158429-2 (Version None)
Quarter: 2006Q4

REPORT INFORMATION
  Report Type: 
  Country: None (occurrence: None)
  Receive Date: 20061128
  Receipt Date: 20061117
  Transmission Date: 20070319
  Serious: Yes (Other)
  Sender: FDA-Public Use
  Company Number: FR-AVENTIS-200614050FR

PATIENT
  Age: 48 Year
  Sex: Female

DRUGS (1)
  1. BIRODOGYL [Suspect]
     Indication: TOOTH INFECTION
     Route: 048
     Dates: start: 20061110

REACTIONS (4)
  - ABDOMINAL PAIN UPPER [None]
  - ANGINA PECTORIS [None]
  - DRY MOUTH [None]
  - HEADACHE [None]
